FAERS Safety Report 21593592 (Version 2)
Quarter: 2023Q1

REPORT INFORMATION
  Report Type: Report from Study
  Country: US (occurrence: US)
  Receive Date: 20221115
  Receipt Date: 20230222
  Transmission Date: 20230417
  Serious: No
  Sender: FDA-Public Use
  Company Number: US-ABBVIE-22K-163-4474216-00

PATIENT
  Age: 70 Year
  Sex: Female

DRUGS (1)
  1. SKYRIZI [Suspect]
     Active Substance: RISANKIZUMAB-RZAA
     Indication: Psoriasis
     Route: 058
     Dates: start: 20220409

REACTIONS (12)
  - Fatigue [Recovering/Resolving]
  - Upper respiratory tract infection [Recovering/Resolving]
  - Influenza [Recovering/Resolving]
  - Chills [Unknown]
  - Diarrhoea [Recovering/Resolving]
  - Visual impairment [Unknown]
  - Illness [Recovered/Resolved]
  - Hyperhidrosis [Recovering/Resolving]
  - Mobility decreased [Unknown]
  - Hypophagia [Unknown]
  - COVID-19 [Unknown]
  - Illness [Unknown]

NARRATIVE: CASE EVENT DATE: 20220714
